FAERS Safety Report 23580143 (Version 1)
Quarter: 2024Q1

REPORT INFORMATION
  Report Type: Spontaneous
  Country: US (occurrence: US)
  Receive Date: 20240229
  Receipt Date: 20240229
  Transmission Date: 20240409
  Serious: No
  Sender: FDA-Public Use
  Company Number: US-BAUSCH-BL-2024-003035

PATIENT
  Age: 46 Year
  Sex: Male

DRUGS (5)
  1. XIFAXAN [Suspect]
     Active Substance: RIFAXIMIN
     Indication: Gastrointestinal bacterial overgrowth
     Dosage: COMPLETED A THREE WEEK COURSE
     Route: 048
     Dates: start: 202310, end: 202310
  2. XIFAXAN [Suspect]
     Active Substance: RIFAXIMIN
     Indication: Irritable bowel syndrome
     Dosage: FIRST WEEK OF THE 2-WEEK COURSE
     Route: 048
     Dates: start: 2024
  3. AMLODIPINE [Concomitant]
     Active Substance: AMLODIPINE BESYLATE
     Indication: Product used for unknown indication
  4. HYDROCHLOROTHIAZIDE\LISINOPRIL [Concomitant]
     Active Substance: HYDROCHLOROTHIAZIDE\LISINOPRIL
     Indication: Product used for unknown indication
  5. SERTRALINE [Concomitant]
     Active Substance: SERTRALINE HYDROCHLORIDE
     Indication: Product used for unknown indication

REACTIONS (4)
  - Irritable bowel syndrome [Unknown]
  - Gastrointestinal bacterial overgrowth [Unknown]
  - Disease recurrence [Unknown]
  - Product administration error [Unknown]

NARRATIVE: CASE EVENT DATE: 20231001
